FAERS Safety Report 8074473-X (Version None)
Quarter: 2012Q1

REPORT INFORMATION
  Report Type: 
  Country: None (occurrence: None)
  Receive Date: 20120126
  Receipt Date: 20120118
  Transmission Date: 20120608
  Serious: Yes (Hospitalization, Other)
  Sender: FDA-Public Use
  Company Number: GB-ABBOTT-12P-167-0895023-00

PATIENT
  Sex: Female

DRUGS (5)
  1. RITONAVIR [Suspect]
     Indication: HIV INFECTION
  2. LAMIVUDINE [Suspect]
     Indication: HIV INFECTION
  3. PREZISTA [Suspect]
     Indication: HIV INFECTION
     Route: 048
  4. ANTITUBERCULOSIS MEDICATION [Concomitant]
     Indication: TUBERCULOSIS
  5. RALTEGRAVIR [Suspect]
     Indication: HIV INFECTION

REACTIONS (3)
  - CD4 LYMPHOCYTES DECREASED [None]
  - RASH [None]
  - BLOOD HIV RNA INCREASED [None]
